FAERS Safety Report 17768234 (Version 1)
Quarter: 2020Q2

REPORT INFORMATION
  Report Type: Spontaneous
  Country: ES (occurrence: ES)
  Receive Date: 20200511
  Receipt Date: 20200511
  Transmission Date: 20200714
  Serious: Yes (Hospitalization, Other)
  Sender: FDA-Public Use
  Company Number: ES-GILEAD-2020-0447809

PATIENT
  Age: 64 Year
  Sex: Male

DRUGS (4)
  1. GEMCITABINE. [Concomitant]
     Active Substance: GEMCITABINE
  2. YESCARTA [Suspect]
     Active Substance: AXICABTAGENE CILOLEUCEL
     Indication: DIFFUSE LARGE B-CELL LYMPHOMA
     Dosage: UNK
     Route: 042
     Dates: start: 20200210, end: 20200210
  3. OXALIPLATIN. [Concomitant]
     Active Substance: OXALIPLATIN
  4. PEGFILGRASTIM [Concomitant]
     Active Substance: PEGFILGRASTIM

REACTIONS (3)
  - Pseudomonal bacteraemia [Not Recovered/Not Resolved]
  - Human herpesvirus 6 encephalitis [Recovered/Resolved]
  - Cytokine release syndrome [Recovered/Resolved]
